FAERS Safety Report 6872830-8 (Version None)
Quarter: 2010Q3

REPORT INFORMATION
  Report Type: 
  Country: None (occurrence: None)
  Receive Date: 20100723
  Receipt Date: 20081101
  Transmission Date: 20110219
  Serious: Yes (Other)
  Sender: FDA-Public Use
  Company Number: US-PFIZER INC-2008092185

PATIENT
  Sex: Female
  Weight: 56.2 kg

DRUGS (8)
  1. CHANTIX [Suspect]
     Indication: SMOKING CESSATION THERAPY
     Route: 048
     Dates: start: 20080101, end: 20080101
  2. MIRTAZAPINE [Concomitant]
  3. BUSPIRONE HYDROCHLORIDE [Concomitant]
  4. ZOLPIDEM TARTRATE [Concomitant]
  5. FLUOXETINE [Concomitant]
  6. ALBUTEROL [Concomitant]
  7. COMBIVENT [Concomitant]
  8. DIAZEPAM [Concomitant]

REACTIONS (4)
  - MIDDLE INSOMNIA [None]
  - NIGHTMARE [None]
  - SUICIDAL IDEATION [None]
  - THINKING ABNORMAL [None]
